FAERS Safety Report 20064251 (Version 1)
Quarter: 2021Q4

REPORT INFORMATION
  Report Type: Spontaneous
  Country: NL (occurrence: NL)
  Receive Date: 20211112
  Receipt Date: 20211112
  Transmission Date: 20220303
  Serious: Yes (Hospitalization)
  Sender: FDA-Public Use
  Company Number: None

PATIENT
  Sex: Female
  Weight: 140 kg

DRUGS (4)
  1. PREGABALIN [Suspect]
     Active Substance: PREGABALIN
     Indication: Neuralgia
     Dosage: UNIT DOSE:25 MG ,2DD1T
     Dates: start: 2020, end: 20201001
  2. PROPRANOLOL / Brand name not specified [Concomitant]
     Dosage: MODIFIED RELEASE CAPSULE, 80 MG (MILLIGRAM),THERAPY START DATE :ASKU,THERAPY END DATE :ASKU
  3. MEBEVERINE / Brand name not specified [Concomitant]
     Dosage: MODIFIED RELEASE CAPSULE, 200 MG (MILLIGRAM),THERAPY START DATE :ASKU,THERAPY END DATE :ASKU
  4. NORTRIPTYLINE / Brand name not specified [Concomitant]
     Dosage: 25 MG (MILLIGRAM),THERAPY START DATE :ASKU,THERAPY END DATE :ASKU

REACTIONS (1)
  - Cutaneous vasculitis [Unknown]
